FAERS Safety Report 9940985 (Version 2)
Quarter: 2014Q1

REPORT INFORMATION
  Report Type: Spontaneous
  Country: US (occurrence: US)
  Receive Date: 20140303
  Receipt Date: 20140304
  Transmission Date: 20141002
  Serious: No
  Sender: FDA-Public Use
  Company Number: US-PFIZER INC-2014056686

PATIENT
  Age: 52 Year
  Sex: Female

DRUGS (1)
  1. LEVOXYL [Suspect]
     Indication: AUTOIMMUNE THYROIDITIS
     Dosage: 0.75 UG, 1X/DAY
     Dates: end: 20130601

REACTIONS (3)
  - Malaise [Unknown]
  - Drug ineffective [Unknown]
  - Product taste abnormal [Unknown]
